FAERS Safety Report 8584794-X (Version None)
Quarter: 2012Q2

REPORT INFORMATION
  Report Type: 
  Country: None (occurrence: None)
  Receive Date: 20120423
  Receipt Date: 20091211
  Transmission Date: 20120825
  Serious: Yes (Hospitalization)
  Sender: FDA-Public Use
  Company Number: PHEH2009US14516

PATIENT
  Age: 22 Year
  Sex: Female

DRUGS (4)
  1. EXJADE [Suspect]
     Indication: IRON OVERLOAD
     Dosage: 1250 MG, QD, ORAL; 1250 MG,QD, ORAL
     Route: 048
     Dates: start: 20091001
  2. EXJADE [Suspect]
     Indication: SICKLE CELL ANAEMIA
     Dosage: 1250 MG, QD, ORAL; 1250 MG,QD, ORAL
     Route: 048
     Dates: start: 20091001
  3. EXJADE [Suspect]
     Indication: IRON OVERLOAD
     Dosage: 1250 MG, QD, ORAL; 1250 MG,QD, ORAL
     Route: 048
     Dates: start: 20091002, end: 20091007
  4. EXJADE [Suspect]
     Indication: SICKLE CELL ANAEMIA
     Dosage: 1250 MG, QD, ORAL; 1250 MG,QD, ORAL
     Route: 048
     Dates: start: 20091002, end: 20091007

REACTIONS (1)
  - SICKLE CELL ANAEMIA WITH CRISIS [None]
